FAERS Safety Report 12241497 (Version 1)
Quarter: 2016Q2

REPORT INFORMATION
  Report Type: Spontaneous
  Country: NL (occurrence: NL)
  Receive Date: 20160406
  Receipt Date: 20160406
  Transmission Date: 20160815
  Serious: Yes (Hospitalization, Other)
  Sender: FDA-Public Use
  Company Number: NL-NOVOPROD-485859

PATIENT
  Age: 63 Year
  Sex: Female
  Weight: 115 kg

DRUGS (12)
  1. INSULIN ASPART [Concomitant]
     Active Substance: INSULIN ASPART
     Dosage: 30 IE, TID
     Route: 058
  2. LATANOPROST. [Concomitant]
     Active Substance: LATANOPROST
     Dosage: UNK (QD)
     Route: 065
  3. CLOPIDOGREL [Concomitant]
     Active Substance: CLOPIDOGREL BISULFATE
     Dosage: 75 MG, QD
     Route: 048
  4. PANTOPRAZOL [Concomitant]
     Active Substance: PANTOPRAZOLE SODIUM
     Dosage: 40 MG, QD
     Route: 048
  5. CLEMASTINE [Concomitant]
     Active Substance: CLEMASTINE
     Dosage: 1 MG WHEN NECESSARY
     Route: 048
  6. DULOXETINE. [Concomitant]
     Active Substance: DULOXETINE
     Dosage: 30 MG, QD
     Route: 048
  7. METFORMINE [Concomitant]
     Active Substance: METFORMIN HYDROCHLORIDE
     Dosage: 500 MG, BID
     Route: 048
  8. CALCIUM CARBONATE W/COLECALCIFEROL [Concomitant]
     Active Substance: CALCIUM CARBONATE\CHOLECALCIFEROL
     Dosage: UNK (QD)
     Route: 048
  9. TIMOLOL. [Concomitant]
     Active Substance: TIMOLOL
     Dosage: UNK (QD)
     Route: 065
  10. TRESIBA [Suspect]
     Active Substance: INSULIN DEGLUDEC
     Indication: TYPE 2 DIABETES MELLITUS
     Dosage: UNK (LATENCY OF 4 WEEKS, QD)
     Route: 058
     Dates: start: 201601, end: 20160220
  11. NICOTINAMIDE [Concomitant]
     Active Substance: NIACINAMIDE
     Dosage: 250 MG, QD
     Route: 065
  12. DOXYCYCLINE. [Concomitant]
     Active Substance: DOXYCYCLINE
     Dosage: 100 MG, QD
     Route: 048

REACTIONS (2)
  - Pemphigoid [Recovered/Resolved]
  - Diabetes mellitus inadequate control [Unknown]

NARRATIVE: CASE EVENT DATE: 201602
